FAERS Safety Report 11153288 (Version 5)
Quarter: 2015Q3

REPORT INFORMATION
  Report Type: Spontaneous
  Country: US (occurrence: US)
  Receive Date: 20150601
  Receipt Date: 20150727
  Transmission Date: 20151125
  Serious: Yes (Life-Threatening, Hospitalization, Other)
  Sender: FDA-Public Use
  Company Number: PHHY2015US062926

PATIENT
  Age: 23 Year
  Sex: Male
  Weight: 42 kg

DRUGS (15)
  1. LIORESAL [Suspect]
     Active Substance: BACLOFEN
     Dosage: BOLUS DOSE
     Route: 037
     Dates: start: 20150518
  2. LIORESAL [Suspect]
     Active Substance: BACLOFEN
     Dosage: 425 MCG/DAY (REDUCED TO HALF 50%)
     Route: 037
     Dates: start: 20150518
  3. HYDROXYZINE HCL [Suspect]
     Active Substance: HYDROXYZINE HYDROCHLORIDE
     Indication: PRODUCT USED FOR UNKNOWN INDICATION
     Dosage: 10 MG, TID (AS NEEDED)
     Route: 065
  4. BACLOFEN. [Suspect]
     Active Substance: BACLOFEN
     Indication: PRODUCT USED FOR UNKNOWN INDICATION
     Dosage: UNK
     Route: 048
     Dates: start: 20150514, end: 20150516
  5. DILANTIN [Suspect]
     Active Substance: PHENYTOIN
     Indication: PRODUCT USED FOR UNKNOWN INDICATION
     Dosage: 5 DF, AT BEDTIME (05 TABS)
     Route: 065
  6. KEPPRA [Suspect]
     Active Substance: LEVETIRACETAM
     Indication: PRODUCT USED FOR UNKNOWN INDICATION
     Dosage: 1500 MG, BID EVERY 12 HOURS
     Route: 065
  7. MIRALAX [Suspect]
     Active Substance: POLYETHYLENE GLYCOL 3350
     Indication: PRODUCT USED FOR UNKNOWN INDICATION
     Route: 065
  8. ENEMEEZ [Suspect]
     Active Substance: DOCUSATE SODIUM
     Indication: PRODUCT USED FOR UNKNOWN INDICATION
     Route: 065
  9. LIORESAL [Suspect]
     Active Substance: BACLOFEN
     Dosage: BOLUS DOSE
     Route: 037
     Dates: start: 20150519
  10. LIORESAL [Suspect]
     Active Substance: BACLOFEN
     Dosage: 480 UG, QD (INCREASED BY 15 PERCENT)
     Route: 037
     Dates: start: 20150520
  11. ATARAX [Suspect]
     Active Substance: HYDROXYZINE\HYDROXYZINE HYDROCHLORIDE
     Indication: PAIN
     Dosage: UNK
     Route: 065
  12. LIORESAL [Suspect]
     Active Substance: BACLOFEN
     Indication: MUSCLE SPASTICITY
     Dosage: 849.4 MCG/DAY
     Route: 037
     Dates: start: 20150518
  13. LIORESAL [Suspect]
     Active Substance: BACLOFEN
     Dosage: AT HALF OF WHAT HE WAS (16 PERCENT)
     Route: 037
     Dates: start: 20150519
  14. VIMPAT [Suspect]
     Active Substance: LACOSAMIDE
     Indication: PRODUCT USED FOR UNKNOWN INDICATION
     Dosage: 1 DF, BID
     Route: 065
  15. LIORESAL [Suspect]
     Active Substance: BACLOFEN
     Dosage: 425 UG, QD
     Route: 037

REACTIONS (16)
  - Body temperature increased [Unknown]
  - Therapeutic response decreased [Unknown]
  - Drug withdrawal syndrome [Unknown]
  - Respiratory depression [Unknown]
  - Renal impairment [Unknown]
  - Muscle spasticity [Unknown]
  - Muscle tightness [Unknown]
  - Hypertonia [Unknown]
  - Respiratory rate increased [Unknown]
  - Pain [Unknown]
  - Muscle spasms [Unknown]
  - Musculoskeletal stiffness [Unknown]
  - Tremor [Unknown]
  - Unevaluable event [Unknown]
  - Hepatic enzyme increased [Unknown]
  - Respiratory distress [Unknown]

NARRATIVE: CASE EVENT DATE: 201504
